FAERS Safety Report 21240073 (Version 1)
Quarter: 2022Q3

REPORT INFORMATION
  Report Type: Spontaneous
  Country: US (occurrence: None)
  Receive Date: 20220821
  Receipt Date: 20220821
  Transmission Date: 20221026
  Serious: Yes (Life-Threatening, Hospitalization)
  Sender: FDA-Public Use
  Company Number: None

PATIENT
  Age: 76 Year
  Sex: Male

DRUGS (1)
  1. APIXABAN [Suspect]
     Active Substance: APIXABAN

REACTIONS (8)
  - Melaena [None]
  - Haemoglobin decreased [None]
  - Clotting factor transfusion [None]
  - Gastritis [None]
  - Gastritis erosive [None]
  - Haemorrhoids [None]
  - Large intestinal ulcer [None]
  - Red blood cell transfusion [None]

NARRATIVE: CASE EVENT DATE: 20220405
